FAERS Safety Report 8002775-1 (Version None)
Quarter: 2011Q4

REPORT INFORMATION
  Report Type: 
  Country: None (occurrence: None)
  Receive Date: 20111222
  Receipt Date: 20111217
  Transmission Date: 20120403
  Serious: No
  Sender: FDA-Public Use
  Company Number: US-B.I. PHARMACEUTICALS,INC./RIDGEFIELD-2011-BP-28372BP

PATIENT
  Age: 63 Year
  Sex: Female

DRUGS (2)
  1. ASPIRIN [Concomitant]
  2. ZANTAC 75 [Suspect]
     Indication: PROPHYLAXIS
     Dosage: 150 MG
     Route: 048
     Dates: start: 20111216

REACTIONS (1)
  - MUSCLE TWITCHING [None]
